FAERS Safety Report 9441278 (Version 1)
Quarter: 2013Q3

REPORT INFORMATION
  Report Type: Spontaneous
  Country: FR (occurrence: FR)
  Receive Date: 20130805
  Receipt Date: 20130805
  Transmission Date: 20140515
  Serious: Yes (Life-Threatening)
  Sender: FDA-Public Use
  Company Number: FR-AMGEN-FRASP2013054337

PATIENT
  Age: 49 Year
  Sex: Male

DRUGS (5)
  1. NEUPOGEN [Suspect]
     Indication: NEUTROPENIA
     Dosage: UNK
     Route: 058
     Dates: start: 201301, end: 20130628
  2. ADRIAMYCIN /00330901/ [Suspect]
     Indication: HODGKIN^S DISEASE STAGE IV
     Dosage: UNK
     Route: 042
     Dates: start: 201301, end: 20130614
  3. BLEOMYCINE [Suspect]
     Indication: HODGKIN^S DISEASE STAGE IV
     Dosage: UNK
     Route: 065
     Dates: start: 201301, end: 20130614
  4. VINBLASTINE [Suspect]
     Indication: HODGKIN^S DISEASE STAGE IV
     Dosage: UNK
     Route: 065
     Dates: start: 201301, end: 20130614
  5. RITUXIMAB [Suspect]
     Indication: HODGKIN^S DISEASE STAGE IV
     Dosage: UNK
     Route: 065
     Dates: start: 201301, end: 20130614

REACTIONS (1)
  - Interstitial lung disease [Not Recovered/Not Resolved]
